FAERS Safety Report 21886006 (Version 3)
Quarter: 2023Q1

REPORT INFORMATION
  Report Type: Spontaneous
  Country: DE (occurrence: DE)
  Receive Date: 20230119
  Receipt Date: 20230330
  Transmission Date: 20230418
  Serious: Yes (Hospitalization, Other)
  Sender: FDA-Public Use
  Company Number: DE-JNJFOC-20230122874

PATIENT
  Age: 36 Year
  Sex: Female
  Weight: 65 kg

DRUGS (1)
  1. STELARA [Suspect]
     Active Substance: USTEKINUMAB
     Indication: Colitis ulcerative
     Route: 058
     Dates: start: 202010

REACTIONS (4)
  - Cervical incompetence [Unknown]
  - Colitis ulcerative [Unknown]
  - Exposure during pregnancy [Recovered/Resolved]
  - Lactation disorder [Unknown]

NARRATIVE: CASE EVENT DATE: 20220714
